FAERS Safety Report 18227596 (Version 1)
Quarter: 2020Q3

REPORT INFORMATION
  Report Type: Spontaneous
  Country: US (occurrence: US)
  Receive Date: 20200902
  Receipt Date: 20200902
  Transmission Date: 20201103
  Serious: Yes (Death)
  Sender: FDA-Public Use
  Company Number: None

PATIENT
  Sex: Male

DRUGS (44)
  1. ACYCLOVIR. [Concomitant]
     Active Substance: ACYCLOVIR
  2. PANCREASE MT [Concomitant]
     Active Substance: PANCRELIPASE
  3. PROPRANOLOL [Concomitant]
     Active Substance: PROPRANOLOL HYDROCHLORIDE
  4. VENTOLIN HFA [Concomitant]
     Active Substance: ALBUTEROL SULFATE
  5. TEMAZEPAM. [Concomitant]
     Active Substance: TEMAZEPAM
  6. URSODIOL. [Concomitant]
     Active Substance: URSODIOL
  7. BONIVA [Concomitant]
     Active Substance: IBANDRONATE SODIUM
  8. CELLCEPT [Concomitant]
     Active Substance: MYCOPHENOLATE MOFETIL\MYCOPHENOLATE MOFETIL HYDROCHLORIDE
  9. GABAPENTIN. [Concomitant]
     Active Substance: GABAPENTIN
  10. ALBUTEROL NEB [Concomitant]
     Active Substance: ALBUTEROL
  11. CARDIZEM CD [Concomitant]
     Active Substance: DILTIAZEM HYDROCHLORIDE
  12. HUMALOG [Concomitant]
     Active Substance: INSULIN LISPRO
  13. PROAIR HFA [Concomitant]
     Active Substance: ALBUTEROL SULFATE
  14. PULMOZYME [Concomitant]
     Active Substance: DORNASE ALFA
  15. SMZ/TMP DS [Concomitant]
     Active Substance: SULFAMETHOXAZOLE\TRIMETHOPRIM
  16. AZITHROMYCIN ANHYDROUS. [Concomitant]
     Active Substance: AZITHROMYCIN ANHYDROUS
  17. BYSTOLIC [Concomitant]
     Active Substance: NEBIVOLOL HYDROCHLORIDE
  18. GAVILYTE G [Concomitant]
     Active Substance: POLYETHYLENE GLYCOL 3350\POTASSIUM CHLORIDE\SODIUM BICARBONATE\SODIUM CHLORIDE\SODIUM SULFATE ANHYDROUS
  19. PREDNISONE. [Concomitant]
     Active Substance: PREDNISONE
  20. SODIUM CHLOR NEB 7% [Concomitant]
  21. ADVAIR DISKU [Concomitant]
  22. DOXYCYCL HYC [Concomitant]
  23. ELIQUIS [Concomitant]
     Active Substance: APIXABAN
  24. ETHAMBUTOL [Concomitant]
     Active Substance: ETHAMBUTOL HYDROCHLORIDE
  25. LANTUS SOLOS [Concomitant]
  26. PROGRAF [Concomitant]
     Active Substance: TACROLIMUS
  27. SERTRALINE [Concomitant]
     Active Substance: SERTRALINE HYDROCHLORIDE
  28. TACROLIMUS. [Concomitant]
     Active Substance: TACROLIMUS
  29. TOBI NEB [Concomitant]
  30. SIVEXTRO [Suspect]
     Active Substance: TEDIZOLID PHOSPHATE
     Indication: LUNG TRANSPLANT
     Route: 048
     Dates: start: 20200221
  31. CIPROFLOXACIN. [Concomitant]
     Active Substance: CIPROFLOXACIN
  32. LORAZEPAM. [Concomitant]
     Active Substance: LORAZEPAM
  33. RIFAMPIN. [Concomitant]
     Active Substance: RIFAMPIN
  34. SILDENAFIL. [Concomitant]
     Active Substance: SILDENAFIL
  35. TAZTIA XT [Concomitant]
     Active Substance: DILTIAZEM HYDROCHLORIDE
  36. WIXELA INHUB [Concomitant]
     Active Substance: FLUTICASONE PROPIONATE\SALMETEROL XINAFOATE
  37. MYCOPHENOLATE  500MG TAB [Suspect]
     Active Substance: MYCOPHENOLIC ACID
     Indication: LUNG TRANSPLANT
     Route: 048
     Dates: start: 20191015
  38. DRONABINOL. [Concomitant]
     Active Substance: DRONABINOL
  39. LANTUS [Concomitant]
     Active Substance: INSULIN GLARGINE
  40. MIRTAZAPINE. [Concomitant]
     Active Substance: MIRTAZAPINE
  41. ONDANSETRON [Concomitant]
     Active Substance: ONDANSETRON
  42. PANCREAZE [Concomitant]
     Active Substance: PANCRELIPASE AMYLASE\PANCRELIPASE LIPASE\PANCRELIPASE PROTEASE
  43. PANTOPRAZOLE [Concomitant]
     Active Substance: PANTOPRAZOLE
  44. TERAZOSIN [Concomitant]
     Active Substance: TERAZOSIN HYDROCHLORIDE

REACTIONS (1)
  - Death [None]
